APPROVED DRUG PRODUCT: MORPHINE SULFATE
Active Ingredient: MORPHINE SULFATE
Strength: 15MG
Dosage Form/Route: TABLET, EXTENDED RELEASE;ORAL
Application: A075407 | Product #001 | TE Code: AB
Applicant: DAVA PHARMACEUTICALS INC
Approved: Jan 28, 2000 | RLD: No | RS: No | Type: RX